FAERS Safety Report 8144477-7 (Version None)
Quarter: 2012Q1

REPORT INFORMATION
  Report Type: 
  Country: None (occurrence: None)
  Receive Date: 20120217
  Receipt Date: 20120206
  Transmission Date: 20120608
  Serious: Yes (Life-Threatening, Hospitalization)
  Sender: FDA-Public Use
  Company Number: US-GLAXOSMITHKLINE-A0965945A

PATIENT
  Age: 71 Year
  Sex: Male
  Weight: 83.6 kg

DRUGS (11)
  1. MULTI-VITAMIN [Concomitant]
     Dosage: 1TAB PER DAY
  2. VALACYCLOVIR [Concomitant]
  3. ANTIBIOTIC [Concomitant]
     Indication: SINUSITIS
  4. ALLOPURINOL [Concomitant]
  5. CALCIUM CARBONATE + VITAMIN D [Concomitant]
     Dosage: 1.5TAB PER DAY
  6. SEPTRA [Concomitant]
  7. FOLIC ACID [Concomitant]
  8. ASCORBIC ACID [Concomitant]
  9. METHYLPREDNISOLONE [Suspect]
     Indication: CHRONIC LYMPHOCYTIC LEUKAEMIA
     Dates: start: 20120203
  10. ARZERRA [Suspect]
     Indication: CHRONIC LYMPHOCYTIC LEUKAEMIA
     Dosage: 1000MGM2 WEEKLY
     Route: 042
     Dates: start: 20120202
  11. BACTRIM [Concomitant]

REACTIONS (2)
  - ACUTE MYOCARDIAL INFARCTION [None]
  - PNEUMONIA [None]
